FAERS Safety Report 25153177 (Version 3)
Quarter: 2025Q2

REPORT INFORMATION
  Report Type: Spontaneous
  Country: SE (occurrence: SE)
  Receive Date: 20250403
  Receipt Date: 20250411
  Transmission Date: 20250716
  Serious: Yes (Death, Hospitalization)
  Sender: BOEHRINGER INGELHEIM
  Company Number: SE-BoehringerIngelheim-2025-BI-018833

PATIENT
  Age: 79 Year
  Sex: Male

DRUGS (2)
  1. OFEV [Suspect]
     Active Substance: NINTEDANIB
     Indication: Idiopathic pulmonary fibrosis
     Dates: start: 2021, end: 2024
  2. OFEV [Suspect]
     Active Substance: NINTEDANIB
     Dates: start: 202202, end: 2024

REACTIONS (5)
  - Idiopathic pulmonary fibrosis [Fatal]
  - Dyspnoea [Unknown]
  - Infection [Unknown]
  - Condition aggravated [Unknown]
  - Diarrhoea [Unknown]

NARRATIVE: CASE EVENT DATE: 20240904
